FAERS Safety Report 4377091-X (Version None)
Quarter: 2004Q2

REPORT INFORMATION
  Report Type: 
  Country: None (occurrence: None)
  Receive Date: 20040608
  Receipt Date: 20040526
  Transmission Date: 20050107
  Serious: Yes (Death, Hospitalization)
  Sender: FDA-Public Use
  Company Number: JP-JNJFOC-20040503056

PATIENT
  Age: 76 Year
  Sex: Male
  Weight: 55 kg

DRUGS (8)
  1. REMICADE [Suspect]
     Indication: RHEUMATOID ARTHRITIS
     Dosage: 3 MG/KG, 1 IN 1 AS NECESSARY, INTRAVENOUS DRIP
     Route: 041
     Dates: start: 20040408, end: 20040408
  2. PREDNISOLONE [Suspect]
     Indication: RHEUMATOID ARTHRITIS
     Dosage: 10 MG, IN 1 DAY, ORAL
     Route: 048
     Dates: start: 20010501, end: 20040502
  3. RHEUMATREX [Concomitant]
  4. METHOTREXATE [Concomitant]
  5. AZULFIDINE EN (SULFASALAZINE) TABLETS [Concomitant]
  6. MOBIC (MELOXICAM) CAPSULES [Concomitant]
  7. ISONIAZID [Concomitant]
  8. OPALMON (LIMAPROST) [Concomitant]

REACTIONS (4)
  - ANGIOPATHY [None]
  - GASTROINTESTINAL NECROSIS [None]
  - LARGE INTESTINAL ULCER HAEMORRHAGE [None]
  - SHOCK HAEMORRHAGIC [None]
